FAERS Safety Report 21718555 (Version 2)
Quarter: 2022Q4

REPORT INFORMATION
  Report Type: Other
  Country: GB (occurrence: GB)
  Receive Date: 20221212
  Receipt Date: 20221220
  Transmission Date: 20230113
  Serious: Yes (Life-Threatening, Hospitalization, Other)
  Sender: FDA-Public Use
  Company Number: None

PATIENT
  Age: 83 Year
  Sex: Female

DRUGS (7)
  1. PREDNISOLONE [Suspect]
     Active Substance: PREDNISOLONE
     Indication: Dyspnoea
     Dosage: 30 MILLIGRAM (1ST COURSE 30MG DAILY FOR 7 DAYS , 2ND COURSE 30MG DAILY FOR 5 DAYS. 2ND COURSE COMMEN
     Route: 065
     Dates: start: 20221102
  2. PREDNISOLONE [Suspect]
     Active Substance: PREDNISOLONE
     Dosage: 30 MILLIGRAM (1ST COURSE 30MG DAILY FOR 7 DAYS , 2ND COURSE 30MG DAILY FOR 5 DAYS. 2ND COURSE COMMEN
     Route: 065
     Dates: start: 202211
  3. RIVAROXABAN [Suspect]
     Active Substance: RIVAROXABAN
     Indication: Atrial fibrillation
     Dosage: 15 MILLIGRAM, QD
     Route: 065
     Dates: end: 20221117
  4. CALCIUM CARBONATE\CHOLECALCIFEROL [Concomitant]
     Active Substance: CALCIUM CARBONATE\CHOLECALCIFEROL
     Indication: Product used for unknown indication
     Dosage: UNK
     Route: 065
  5. ADIZEM [Concomitant]
     Active Substance: DILTIAZEM HYDROCHLORIDE
     Indication: Hypertension
     Dosage: UNK
     Route: 065
  6. LEVOTHYROXINE [Concomitant]
     Active Substance: LEVOTHYROXINE
     Indication: Hypothyroidism
     Dosage: UNK
     Route: 065
  7. DOXYCYCLINE [Concomitant]
     Active Substance: DOXYCYCLINE
     Indication: Dyspnoea
     Dosage: 100 MILLIGRAM
     Route: 065
     Dates: end: 20221108

REACTIONS (5)
  - Abdominal wall haematoma [Recovered/Resolved]
  - Abdominal pain [Unknown]
  - Abdominal distension [Unknown]
  - Pneumonia [Unknown]
  - Drug ineffective [Unknown]

NARRATIVE: CASE EVENT DATE: 20221108
